FAERS Safety Report 8053730-7 (Version None)
Quarter: 2012Q1

REPORT INFORMATION
  Report Type: 
  Country: None (occurrence: None)
  Receive Date: 20120118
  Receipt Date: 20120112
  Transmission Date: 20120608
  Serious: Yes (Hospitalization, Other)
  Sender: FDA-Public Use
  Company Number: FR-PFIZER INC-2012008880

PATIENT
  Age: 19 Year
  Sex: Female

DRUGS (1)
  1. LEVONORGESTREL AND ETHINYL ESTRADIOL [Suspect]
     Indication: CONTRACEPTION
     Dosage: 1 DF, 1X/DAY, 21 DAYS OUT OF 28
     Route: 048
     Dates: start: 20110701, end: 20120102

REACTIONS (3)
  - UNINTENDED PREGNANCY [None]
  - ABORTION INDUCED [None]
  - DRUG INEFFECTIVE [None]
